FAERS Safety Report 11725657 (Version 2)
Quarter: 2016Q1

REPORT INFORMATION
  Report Type: Spontaneous
  Country: US (occurrence: US)
  Receive Date: 20151111
  Receipt Date: 20160203
  Transmission Date: 20160525
  Serious: No
  Sender: FDA-Public Use
  Company Number: US-UCBSA-2015011625

PATIENT
  Age: 48 Year
  Sex: Male
  Weight: 76 kg

DRUGS (7)
  1. TRIZIVIR [Concomitant]
     Active Substance: ABACAVIR SULFATE\LAMIVUDINE\ZIDOVUDINE
     Indication: HIV INFECTION
     Dosage: 1 TABLET DAILY
     Route: 048
  2. NORVIR [Concomitant]
     Active Substance: RITONAVIR
     Indication: HIV INFECTION
     Dosage: 100 MG; 1AM 1PM
     Route: 048
  3. AMBIEN [Concomitant]
     Active Substance: ZOLPIDEM TARTRATE
     Indication: SLEEP DISORDER
     Dosage: UNKNOWN DOSE AT BEDTIME
     Route: 048
  4. VIMPAT [Suspect]
     Active Substance: LACOSAMIDE
     Indication: SEIZURE
     Dosage: 200 MG, 2X/DAY (BID)
     Route: 048
     Dates: start: 201410
  5. BACTRIM [Concomitant]
     Active Substance: SULFAMETHOXAZOLE\TRIMETHOPRIM
     Indication: INFECTION
     Dosage: 1 TABLET 800/160; AT BEDTIME
     Route: 048
  6. APTIVUS [Concomitant]
     Active Substance: TIPRANAVIR
     Indication: HIV INFECTION
     Dosage: 250 MG; 2AM AND 2 PM
     Route: 048
  7. KEPPRA [Suspect]
     Active Substance: LEVETIRACETAM
     Indication: SEIZURE
     Dosage: 1000MG 4/DAY
     Route: 048
     Dates: start: 2009

REACTIONS (5)
  - Seizure [Recovered/Resolved]
  - Agitation [Recovering/Resolving]
  - Frustration tolerance decreased [Recovering/Resolving]
  - Overdose [Unknown]
  - Off label use [Unknown]

NARRATIVE: CASE EVENT DATE: 201410
